FAERS Safety Report 9441284 (Version 5)
Quarter: 2013Q4

REPORT INFORMATION
  Report Type: Spontaneous
  Country: US (occurrence: US)
  Receive Date: 20130805
  Receipt Date: 20131101
  Transmission Date: 20140711
  Serious: Yes (Other)
  Sender: FDA-Public Use
  Company Number: US-PFIZER INC-2013226553

PATIENT
  Age: 45 Year
  Sex: Female
  Weight: 63.49 kg

DRUGS (3)
  1. PRISTIQ [Suspect]
     Indication: DEPRESSION
     Dosage: 50 MG, 2X/DAY
     Route: 048
     Dates: start: 2005, end: 20130731
  2. PRISTIQ [Suspect]
     Indication: ANGER
     Dosage: 50 MG, 2X/DAY
     Route: 048
  3. PRISTIQ [Suspect]
     Dosage: 100 MG, UNK
     Route: 048

REACTIONS (15)
  - Off label use [Unknown]
  - Wrong technique in drug usage process [Unknown]
  - Tremor [Not Recovered/Not Resolved]
  - Eye movement disorder [Not Recovered/Not Resolved]
  - Eyelid function disorder [Not Recovered/Not Resolved]
  - Gait disturbance [Not Recovered/Not Resolved]
  - Vertigo [Not Recovered/Not Resolved]
  - Malaise [Not Recovered/Not Resolved]
  - Hypoaesthesia oral [Not Recovered/Not Resolved]
  - Emotional disorder [Not Recovered/Not Resolved]
  - Anger [Not Recovered/Not Resolved]
  - Withdrawal syndrome [Unknown]
  - Paraesthesia oral [Recovered/Resolved]
  - Paraesthesia [Recovered/Resolved]
  - Drug ineffective [Unknown]
